FAERS Safety Report 15329810 (Version 14)
Quarter: 2019Q4

REPORT INFORMATION
  Report Type: Spontaneous
  Country: US (occurrence: US)
  Receive Date: 20180829
  Receipt Date: 20191029
  Transmission Date: 20200122
  Serious: Yes (Other)
  Sender: FDA-Public Use
  Company Number: US-PFIZER INC-2018100181

PATIENT
  Age: 60 Year
  Sex: Female
  Weight: 109 kg

DRUGS (22)
  1. LYRICA [Interacting]
     Active Substance: PREGABALIN
     Indication: NEURALGIA
     Dosage: 375 MG, DAILY (5 TIMES A DAY EVERYDAY)
     Route: 048
  2. LYRICA [Interacting]
     Active Substance: PREGABALIN
     Indication: NERVE COMPRESSION
  3. HYDROCODONE [Concomitant]
     Active Substance: HYDROCODONE
     Indication: BACK DISORDER
  4. OXCARBAZEPINE. [Concomitant]
     Active Substance: OXCARBAZEPINE
     Indication: BIPOLAR DISORDER
     Dosage: 150 MG, TWICE DAILY
     Route: 048
  5. LIDOCAINE. [Concomitant]
     Active Substance: LIDOCAINE
     Indication: SKIN ULCER
     Dosage: UNK, THRICE DAILY
     Route: 061
  6. DAPSONE. [Concomitant]
     Active Substance: DAPSONE
     Indication: INFECTION
     Dosage: 100 MG, ONCE DAILY
     Route: 048
     Dates: start: 20180228, end: 201806
  7. DAPSONE. [Concomitant]
     Active Substance: DAPSONE
     Dosage: UNK
     Dates: end: 201812
  8. ALPRAZOLAM. [Concomitant]
     Active Substance: ALPRAZOLAM
     Indication: BIPOLAR DISORDER
     Dosage: 1 MG, THRICE DAILY
     Route: 048
  9. HYDROXYZINE [Concomitant]
     Active Substance: HYDROXYZINE HYDROCHLORIDE
     Indication: SKIN DISORDER
  10. HYDROXYZINE [Concomitant]
     Active Substance: HYDROXYZINE HYDROCHLORIDE
     Indication: PRURITUS
     Dosage: 50 MG, THRICE DAILY
     Route: 048
  11. TRAZODONE [Concomitant]
     Active Substance: TRAZODONE HYDROCHLORIDE
     Indication: SLEEP DISORDER
     Dosage: 50 MG, ONCE DAILY (AT BEDTIME)
     Route: 048
  12. LYRICA [Suspect]
     Active Substance: PREGABALIN
     Indication: FIBROMYALGIA
     Dosage: 375 MG DAILY (150 MG IN THE MORNING, 75 MG IN THE AFTERNOON, AND 150 MG AT BEDTIME)
     Route: 048
  13. LYRICA [Interacting]
     Active Substance: PREGABALIN
     Indication: PAIN
  14. ZANAFLEX [Interacting]
     Active Substance: TIZANIDINE HYDROCHLORIDE
     Indication: BIPOLAR DISORDER
  15. DULOXETINE HCL [Concomitant]
     Active Substance: DULOXETINE HYDROCHLORIDE
     Indication: PAIN
     Dosage: 60 MG, TWICE DAILY
     Route: 048
  16. DULOXETINE HCL [Concomitant]
     Active Substance: DULOXETINE HYDROCHLORIDE
     Indication: BIPOLAR DISORDER
  17. SOMA [Concomitant]
     Active Substance: CARISOPRODOL
     Indication: PAIN
     Dosage: 350 MG, THRICE DAILY
     Route: 048
     Dates: start: 2004, end: 201705
  18. HYDROCODONE [Concomitant]
     Active Substance: HYDROCODONE
     Indication: PROCEDURAL PAIN
     Dosage: 1 DF, FOUR TIMES DAILY
     Route: 048
  19. TOPAMAX [Concomitant]
     Active Substance: TOPIRAMATE
     Indication: BIPOLAR DISORDER
     Dosage: 200 MG, TWICE DAILY
     Route: 048
  20. ZANAFLEX [Interacting]
     Active Substance: TIZANIDINE HYDROCHLORIDE
     Indication: NEURALGIA
     Dosage: 4 MG, THRICE DAILY
     Dates: start: 201806
  21. FLUOXETINE [Concomitant]
     Active Substance: FLUOXETINE HYDROCHLORIDE
     Indication: BIPOLAR DISORDER
     Dosage: 40 MG, ONCE DAILY
     Route: 048
  22. LIDOCAINE. [Concomitant]
     Active Substance: LIDOCAINE
     Indication: SKIN LESION

REACTIONS (31)
  - Migraine [Not Recovered/Not Resolved]
  - Hyperhidrosis [Not Recovered/Not Resolved]
  - Mental disorder [Not Recovered/Not Resolved]
  - Ecchymosis [Unknown]
  - Tremor [Recovered/Resolved]
  - Formication [Recovered/Resolved]
  - Drug interaction [Not Recovered/Not Resolved]
  - Memory impairment [Unknown]
  - Back pain [Not Recovered/Not Resolved]
  - Feeling hot [Unknown]
  - Pain in extremity [Not Recovered/Not Resolved]
  - Pain [Unknown]
  - Limb injury [Unknown]
  - Arthralgia [Not Recovered/Not Resolved]
  - Impaired driving ability [Not Recovered/Not Resolved]
  - Gastric disorder [Unknown]
  - Intentional product misuse [Unknown]
  - Feeling cold [Not Recovered/Not Resolved]
  - Arthropathy [Not Recovered/Not Resolved]
  - Depression [Unknown]
  - Loss of consciousness [Recovered/Resolved]
  - Speech disorder [Recovered/Resolved]
  - Gait inability [Not Recovered/Not Resolved]
  - Eating disorder [Unknown]
  - Feeling abnormal [Unknown]
  - Inflammation [Unknown]
  - Musculoskeletal discomfort [Recovered/Resolved]
  - Paraesthesia [Not Recovered/Not Resolved]
  - Contusion [Unknown]
  - Fall [Unknown]
  - Insomnia [Unknown]
